FAERS Safety Report 25597695 (Version 2)
Quarter: 2025Q3

REPORT INFORMATION
  Report Type: Report from Study
  Country: JP (occurrence: JP)
  Receive Date: 20250723
  Receipt Date: 20250902
  Transmission Date: 20251020
  Serious: Yes (Disabling)
  Sender: BIOGEN
  Company Number: JP-BIOGEN-2025BI01315462

PATIENT
  Age: 13 Year
  Sex: Female
  Weight: 35 kg

DRUGS (7)
  1. SPINRAZA [Suspect]
     Active Substance: NUSINERSEN
     Indication: Spinal muscular atrophy
     Route: 050
  2. SPINRAZA [Suspect]
     Active Substance: NUSINERSEN
     Route: 050
     Dates: start: 20200401, end: 20200401
  3. SPINRAZA [Suspect]
     Active Substance: NUSINERSEN
     Route: 050
     Dates: start: 20201007, end: 20201007
  4. VALPROATE SODIUM [Concomitant]
     Active Substance: VALPROATE SODIUM
     Indication: Spinal muscular atrophy
     Route: 050
  5. LEVOCARNITINE [Concomitant]
     Active Substance: LEVOCARNITINE
     Indication: Prophylaxis
     Route: 050
  6. PROPOFOL [Concomitant]
     Active Substance: PROPOFOL
     Indication: Anaesthesia procedure
     Route: 050
  7. FENTANYL [Concomitant]
     Active Substance: FENTANYL
     Indication: Anaesthesia procedure
     Route: 050

REACTIONS (1)
  - Neuralgia [Not Recovered/Not Resolved]

NARRATIVE: CASE EVENT DATE: 20200703
